FAERS Safety Report 19432152 (Version 4)
Quarter: 2021Q3

REPORT INFORMATION
  Report Type: Spontaneous
  Country: DE (occurrence: DE)
  Receive Date: 20210617
  Receipt Date: 20210721
  Transmission Date: 20211014
  Serious: Yes (Other)
  Sender: FDA-Public Use
  Company Number: DE-B.I. PHARMACEUTICALS,INC./RIDGEFIELD-2021-BI-108617

PATIENT
  Age: 55 Year
  Sex: Male
  Weight: 95 kg

DRUGS (4)
  1. OFEV [Suspect]
     Active Substance: NINTEDANIB
     Indication: INTERSTITIAL LUNG DISEASE
     Dates: start: 2014, end: 2019
  2. METHOTREXATE. [Concomitant]
     Active Substance: METHOTREXATE
     Indication: PRODUCT USED FOR UNKNOWN INDICATION
  3. RITUXIMAB. [Concomitant]
     Active Substance: RITUXIMAB
     Indication: PRODUCT USED FOR UNKNOWN INDICATION
  4. OFEV [Suspect]
     Active Substance: NINTEDANIB
     Dates: start: 2020

REACTIONS (12)
  - Restrictive pulmonary disease [Unknown]
  - Pulmonary arterial hypertension [Unknown]
  - Dyspnoea exertional [Unknown]
  - Restrictive pulmonary disease [Unknown]
  - Dyspnoea [Unknown]
  - Arthritis [Unknown]
  - Restrictive pulmonary disease [Unknown]
  - Dyspnoea [Unknown]
  - Pneumocystis jirovecii pneumonia [Unknown]
  - Off label use [Unknown]
  - Arthralgia [Unknown]
  - Myocardial strain [Unknown]

NARRATIVE: CASE EVENT DATE: 2016
